FAERS Safety Report 5109392-1 (Version None)
Quarter: 2006Q3

REPORT INFORMATION
  Report Type: 
  Country: None (occurrence: None)
  Receive Date: 20060920
  Receipt Date: 20060907
  Transmission Date: 20061208
  Serious: Yes (Hospitalization, Disabling, Other)
  Sender: FDA-Public Use
  Company Number: SE-NOVOPROD-256723

PATIENT
  Age: 66 Year
  Sex: Female
  Weight: 53 kg

DRUGS (3)
  1. NOVOSEVEN [Suspect]
     Indication: CEREBRAL HAEMORRHAGE
     Dosage: 80 UG/KG, UNK
     Route: 042
     Dates: start: 20060826, end: 20060826
  2. ALBEC [Concomitant]
     Dosage: 50 UG, QD
     Route: 042
     Dates: start: 20060902, end: 20060902
  3. FUREX [Concomitant]
     Dosage: 40 MG, QD
     Route: 042
     Dates: start: 20060902, end: 20060902

REACTIONS (1)
  - RETINAL ARTERY EMBOLISM [None]
